FAERS Safety Report 8179668-2 (Version None)
Quarter: 2012Q1

REPORT INFORMATION
  Report Type: 
  Country: None (occurrence: None)
  Receive Date: 20120302
  Receipt Date: 20120224
  Transmission Date: 20120608
  Serious: Yes (Hospitalization)
  Sender: FDA-Public Use
  Company Number: PR-CELGENEUS-163-21880-12022826

PATIENT
  Sex: Male
  Weight: 111.23 kg

DRUGS (13)
  1. REVLIMID [Suspect]
     Route: 048
     Dates: start: 20120210, end: 20120224
  2. LYRICA [Concomitant]
     Dosage: 200 MILLIGRAM
     Route: 048
  3. LISINOPRIL [Concomitant]
     Indication: HYPERTENSION
  4. PEPCID [Concomitant]
     Dosage: 20 MILLIGRAM
     Route: 048
     Dates: start: 20120223
  5. ASPIRIN [Concomitant]
     Dosage: 81 MILLIGRAM
     Route: 048
     Dates: start: 20120223
  6. CADUET [Concomitant]
     Indication: HYPERTENSION
     Dosage: 5/20MG
     Route: 048
  7. REVLIMID [Suspect]
     Indication: NON-HODGKIN'S LYMPHOMA
     Dosage: 20 MILLIGRAM
     Route: 048
     Dates: start: 20110810
  8. LASIX [Concomitant]
     Dosage: 40 MILLIGRAM
     Route: 041
     Dates: start: 20120223
  9. LYRICA [Concomitant]
     Dosage: 100 MILLIGRAM
     Route: 048
     Dates: start: 20120223
  10. LOPRESSOR [Concomitant]
     Indication: HYPERTENSION
     Dosage: 25 MILLIGRAM
     Route: 048
     Dates: start: 20120223
  11. LISINOPRIL [Concomitant]
     Dosage: 20 MILLIGRAM
     Route: 048
     Dates: start: 20120223
  12. LOVENOX [Concomitant]
     Indication: ANTICOAGULANT THERAPY
     Dosage: 40MG/0.4ML
     Route: 058
     Dates: start: 20120223
  13. ZOCOR [Concomitant]
     Dosage: 40 MILLIGRAM
     Route: 048
     Dates: start: 20120223

REACTIONS (1)
  - GENERALISED OEDEMA [None]
